FAERS Safety Report 8111735-1 (Version None)
Quarter: 2012Q1

REPORT INFORMATION
  Report Type: 
  Country: None (occurrence: None)
  Receive Date: 20120203
  Receipt Date: 20120202
  Transmission Date: 20120608
  Serious: Yes (Other)
  Sender: FDA-Public Use
  Company Number: JP-JNJFOC-20120200024

PATIENT
  Age: 62 Year
  Sex: Male

DRUGS (36)
  1. DOXORUBICIN HCL [Suspect]
     Dosage: CYCLE 4
     Route: 042
  2. DOXORUBICIN HCL [Suspect]
     Dosage: CYCLE 5
     Route: 042
  3. RITUXIMAB [Suspect]
     Route: 065
  4. VINCRISTINE [Suspect]
     Route: 065
  5. DOXORUBICIN HCL [Suspect]
     Dosage: CYCLE 2
     Route: 042
  6. CYCLOPHOSPHAMIDE [Suspect]
     Route: 065
  7. VINCRISTINE [Suspect]
     Indication: DIFFUSE LARGE B-CELL LYMPHOMA
     Route: 065
  8. VINCRISTINE [Suspect]
     Route: 065
  9. DOXORUBICIN HCL [Suspect]
     Indication: DIFFUSE LARGE B-CELL LYMPHOMA
     Dosage: CYCLE 1
     Route: 042
  10. DOXORUBICIN HCL [Suspect]
     Dosage: CYCLE 3
     Route: 042
  11. DOXORUBICIN HCL [Suspect]
     Dosage: CYCLE 4
     Route: 042
  12. DOXORUBICIN HCL [Suspect]
     Dosage: CYCLE 5
     Route: 042
  13. VINCRISTINE [Suspect]
     Route: 065
  14. VINCRISTINE [Suspect]
     Route: 065
  15. VINCRISTINE [Suspect]
     Route: 065
  16. DOXORUBICIN HCL [Suspect]
     Dosage: CYCLE 3
     Route: 042
  17. RITUXIMAB [Suspect]
     Route: 065
  18. CYCLOPHOSPHAMIDE [Suspect]
     Indication: DIFFUSE LARGE B-CELL LYMPHOMA
     Route: 065
  19. CYCLOPHOSPHAMIDE [Suspect]
     Route: 065
  20. CYCLOPHOSPHAMIDE [Suspect]
     Route: 065
  21. CYCLOPHOSPHAMIDE [Suspect]
     Route: 065
  22. DOXORUBICIN HCL [Suspect]
     Dosage: CYCLE 6
     Route: 042
  23. DOXORUBICIN HCL [Suspect]
     Dosage: CYCLE 6
     Route: 042
  24. RITUXIMAB [Suspect]
     Route: 065
  25. PREDNISONE TAB [Suspect]
     Indication: DIFFUSE LARGE B-CELL LYMPHOMA
     Route: 065
  26. PREDNISONE TAB [Suspect]
     Route: 065
  27. PREDNISONE TAB [Suspect]
     Route: 065
  28. DOXORUBICIN HCL [Suspect]
     Dosage: CYCLE 2
     Route: 042
  29. RITUXIMAB [Suspect]
     Route: 065
  30. PREDNISONE TAB [Suspect]
     Route: 065
  31. PREDNISONE TAB [Suspect]
     Route: 065
  32. DOXORUBICIN HCL [Suspect]
     Dosage: CYCLE 1
     Route: 042
  33. RITUXIMAB [Suspect]
     Route: 065
  34. RITUXIMAB [Suspect]
     Indication: DIFFUSE LARGE B-CELL LYMPHOMA
     Route: 065
  35. CYCLOPHOSPHAMIDE [Suspect]
     Route: 065
  36. PREDNISONE TAB [Suspect]
     Route: 065

REACTIONS (1)
  - GASTRIC CANCER [None]
